FAERS Safety Report 16010301 (Version 2)
Quarter: 2019Q1

REPORT INFORMATION
  Report Type: Spontaneous
  Country: CA (occurrence: CA)
  Receive Date: 20190227
  Receipt Date: 20190305
  Transmission Date: 20190418
  Serious: Yes (Life-Threatening, Hospitalization, Other)
  Sender: FDA-Public Use
  Company Number: CA-ROCHE-2270990

PATIENT
  Age: 61 Year
  Sex: Male

DRUGS (6)
  1. XOLAIR [Suspect]
     Active Substance: OMALIZUMAB
     Route: 058
     Dates: start: 20181111
  2. XOLAIR [Suspect]
     Active Substance: OMALIZUMAB
     Route: 058
     Dates: start: 20170829
  3. CARBOCAL D [Concomitant]
     Active Substance: CALCIUM\VITAMIN D
     Indication: PRODUCT USED FOR UNKNOWN INDICATION
     Route: 065
  4. XOLAIR [Suspect]
     Active Substance: OMALIZUMAB
     Indication: ASTHMA
     Route: 058
     Dates: start: 20130110
  5. ZENHALE [Concomitant]
     Active Substance: FORMOTEROL FUMARATE\MOMETASONE FUROATE
     Indication: PRODUCT USED FOR UNKNOWN INDICATION
     Route: 065
  6. TAMSULOSIN [Concomitant]
     Active Substance: TAMSULOSIN
     Indication: PRODUCT USED FOR UNKNOWN INDICATION
     Dosage: 0.4 MG, QD
     Route: 065

REACTIONS (23)
  - Vision blurred [Unknown]
  - Seborrhoeic dermatitis [Unknown]
  - Smoke sensitivity [Unknown]
  - FEV1/FVC ratio decreased [Unknown]
  - General physical condition decreased [Unknown]
  - Depression [Recovered/Resolved]
  - Suicidal ideation [Recovered/Resolved]
  - Forced expiratory volume decreased [Unknown]
  - Blindness transient [Unknown]
  - Mite allergy [Unknown]
  - Chest discomfort [Unknown]
  - Alcoholism [Recovering/Resolving]
  - Asthma [Not Recovered/Not Resolved]
  - Rhinorrhoea [Unknown]
  - Discomfort [Unknown]
  - Rhonchi [Unknown]
  - Weight increased [Unknown]
  - Cough [Unknown]
  - Temperature intolerance [Unknown]
  - Wheezing [Not Recovered/Not Resolved]
  - Terminal insomnia [Not Recovered/Not Resolved]
  - Dyspnoea [Unknown]
  - Productive cough [Unknown]

NARRATIVE: CASE EVENT DATE: 2014
